FAERS Safety Report 5926591-7 (Version None)
Quarter: 2008Q4

REPORT INFORMATION
  Report Type: 
  Country: None (occurrence: None)
  Receive Date: 20081022
  Receipt Date: 20081014
  Transmission Date: 20090506
  Serious: Yes (Other)
  Sender: FDA-Public Use
  Company Number: JP-ASTRAZENECA-2008AP08027

PATIENT
  Age: 72 Year
  Sex: Male

DRUGS (2)
  1. OMEPRAL [Suspect]
     Route: 048
  2. BERIZYM [Concomitant]
     Dosage: DOSE UNKNOWN
     Route: 048

REACTIONS (1)
  - MULTI-ORGAN FAILURE [None]
